FAERS Safety Report 15309738 (Version 1)
Quarter: 2018Q3

REPORT INFORMATION
  Report Type: Spontaneous
  Country: US (occurrence: US)
  Receive Date: 20180823
  Receipt Date: 20180823
  Transmission Date: 20181010
  Serious: No
  Sender: FDA-Public Use
  Company Number: US-MALLINCKRODT-T201703824

PATIENT
  Sex: Male

DRUGS (1)
  1. OXYCODONE [Suspect]
     Active Substance: OXYCODONE
     Indication: PAIN
     Dosage: 5 MG
     Route: 048

REACTIONS (7)
  - Nausea [Unknown]
  - Product solubility abnormal [Unknown]
  - Vomiting [Unknown]
  - Decreased appetite [Unknown]
  - Feeling abnormal [Unknown]
  - Drug ineffective [Unknown]
  - Headache [Unknown]
